FAERS Safety Report 9341156 (Version 2)
Quarter: 2015Q2

REPORT INFORMATION
  Report Type: Spontaneous
  Country: US (occurrence: US)
  Receive Date: 20130611
  Receipt Date: 20150604
  Transmission Date: 20150821
  Serious: Yes (Other)
  Sender: FDA-Public Use
  Company Number: US-AMGEN-USASP2013040560

PATIENT
  Age: 84 Year
  Sex: Female

DRUGS (2)
  1. HUMIRA [Concomitant]
     Active Substance: ADALIMUMAB
     Dosage: UNK
  2. ENBREL [Suspect]
     Active Substance: ETANERCEPT
     Indication: RHEUMATOID ARTHRITIS
     Dosage: UNK
     Route: 065
     Dates: start: 2010, end: 2013

REACTIONS (14)
  - Pruritus [Not Recovered/Not Resolved]
  - Cystitis [Recovered/Resolved]
  - Macular degeneration [Unknown]
  - Oesophageal obstruction [Not Recovered/Not Resolved]
  - Thyroidectomy [Unknown]
  - Abasia [Not Recovered/Not Resolved]
  - Bedridden [Not Recovered/Not Resolved]
  - Neuropathy peripheral [Not Recovered/Not Resolved]
  - Joint swelling [Not Recovered/Not Resolved]
  - Intervertebral disc protrusion [Unknown]
  - Spinal column stenosis [Unknown]
  - Joint range of motion decreased [Not Recovered/Not Resolved]
  - Diabetes mellitus [Unknown]
  - Abdominal distension [Not Recovered/Not Resolved]

NARRATIVE: CASE EVENT DATE: 2012
